FAERS Safety Report 4988941-8 (Version None)
Quarter: 2006Q2

REPORT INFORMATION
  Report Type: 
  Country: None (occurrence: None)
  Receive Date: 20060425
  Receipt Date: 20060418
  Transmission Date: 20061013
  Serious: Yes (Hospitalization, Other)
  Sender: FDA-Public Use
  Company Number: 2006BI004365

PATIENT
  Age: 37 Year
  Sex: Female
  Weight: 52.6173 kg

DRUGS (2)
  1. AVONEX [Suspect]
     Indication: MULTIPLE SCLEROSIS
     Dosage: 30 UG QW IM
     Route: 030
     Dates: start: 19980101, end: 20040101
  2. AVONEX [Suspect]
     Indication: MULTIPLE SCLEROSIS
     Dosage: 30 UG QW IM
     Route: 030
     Dates: start: 20040101

REACTIONS (10)
  - CONJUNCTIVITIS INFECTIVE [None]
  - CONVULSION [None]
  - DARK CIRCLES UNDER EYES [None]
  - DECUBITUS ULCER [None]
  - INSOMNIA [None]
  - LACRIMATION INCREASED [None]
  - MULTIPLE SCLEROSIS [None]
  - PARAPLEGIA [None]
  - SWELLING FACE [None]
  - VISION BLURRED [None]
